FAERS Safety Report 6423767-X (Version None)
Quarter: 2009Q4

REPORT INFORMATION
  Report Type: 
  Country: None (occurrence: None)
  Receive Date: 20091028
  Receipt Date: 20091014
  Transmission Date: 20100525
  Serious: Yes (Other)
  Sender: FDA-Public Use
  Company Number: DE-1171036

PATIENT
  Age: 37 Year
  Sex: Male

DRUGS (1)
  1. FLUORESCEIN SODIUM (FLUORESCEIN SODIUM) 10 % INJECTION LOT# 162623F SO [Suspect]
     Indication: CHORIORETINOPATHY
     Dosage: 2.5ML INTRAVENOUS BOLUS
     Route: 040
     Dates: start: 20090915, end: 20090915

REACTIONS (5)
  - ANAPHYLACTIC SHOCK [None]
  - ANGIOEDEMA [None]
  - PRURITUS [None]
  - URTICARIA [None]
  - VOMITING [None]
